FAERS Safety Report 12950350 (Version 1)
Quarter: 2016Q4

REPORT INFORMATION
  Report Type: Spontaneous
  Country: AT (occurrence: AT)
  Receive Date: 20161116
  Receipt Date: 20161116
  Transmission Date: 20170207
  Serious: Yes (Hospitalization, Other)
  Sender: FDA-Public Use
  Company Number: AT-SA-2016SA203814

PATIENT
  Age: 69 Year
  Sex: Male

DRUGS (6)
  1. ZIPRASIDONE. [Concomitant]
     Active Substance: ZIPRASIDONE
     Route: 065
  2. OXYCODONE [Concomitant]
     Active Substance: OXYCODONE
     Indication: BACK PAIN
     Route: 065
  3. PREGABALIN. [Suspect]
     Active Substance: PREGABALIN
     Indication: BACK PAIN
     Route: 065
  4. ZOLPIDEM [Suspect]
     Active Substance: ZOLPIDEM\ZOLPIDEM TARTRATE
     Route: 048
  5. TAMSULOSIN [Concomitant]
     Active Substance: TAMSULOSIN
     Route: 065
  6. ESOMEPRAZOLE [Concomitant]
     Active Substance: ESOMEPRAZOLE
     Route: 065

REACTIONS (8)
  - Seizure [Recovered/Resolved]
  - Motor dysfunction [Unknown]
  - Somnolence [Unknown]
  - Urinary incontinence [Unknown]
  - Tongue biting [Unknown]
  - Bradyphrenia [Recovered/Resolved]
  - Syncope [Recovered/Resolved]
  - Depression [Recovered/Resolved]
